FAERS Safety Report 8759564 (Version 2)
Quarter: 2012Q4

REPORT INFORMATION
  Report Type: 
  Country: DE (occurrence: DE)
  Receive Date: 20120829
  Receipt Date: 20121126
  Transmission Date: 20130627
  Serious: Yes (Other)
  Sender: FDA-Public Use
  Company Number: PHHY2012DE073789

PATIENT
  Sex: Male

DRUGS (2)
  1. TIMOX [Suspect]
     Indication: EPILEPSY
  2. INSULIN [Concomitant]
     Indication: EPILEPSY

REACTIONS (3)
  - Cardiomyopathy [Unknown]
  - Hypertonia [Unknown]
  - Epilepsy [Unknown]
